FAERS Safety Report 9318151 (Version 1)
Quarter: 2013Q2

REPORT INFORMATION
  Report Type: Spontaneous
  Country: None (occurrence: US)
  Receive Date: 20130530
  Receipt Date: 20130530
  Transmission Date: 20140414
  Serious: No
  Sender: FDA-Public Use
  Company Number: US-NOVEN-12US005519

PATIENT
  Age: 6 Year
  Sex: 0

DRUGS (2)
  1. DAYTRANA [Suspect]
     Indication: PRODUCT USED FOR UNKNOWN INDICATION
     Dosage: 20 MG, QD
     Route: 062
     Dates: start: 20121009
  2. DAYTRANA [Suspect]
     Dosage: 10 MG, UNK
     Dates: start: 2011

REACTIONS (2)
  - Application site haemorrhage [Not Recovered/Not Resolved]
  - Application site ulcer [Not Recovered/Not Resolved]
